FAERS Safety Report 19894689 (Version 3)
Quarter: 2024Q2

REPORT INFORMATION
  Report Type: Report from Study
  Country: US (occurrence: US)
  Receive Date: 20210929
  Receipt Date: 20240430
  Transmission Date: 20240716
  Serious: Yes (Hospitalization, Other)
  Sender: FDA-Public Use
  Company Number: US-ALNYLAM PHARMACEUTICALS, INC.-ALN-2021-002355

PATIENT

DRUGS (3)
  1. GIVLAARI [Suspect]
     Active Substance: GIVOSIRAN SODIUM
     Indication: Porphyria acute
     Dosage: 189 MILLIGRAM, MONTHLY
     Route: 058
     Dates: start: 20210827
  2. GIVLAARI [Suspect]
     Active Substance: GIVOSIRAN SODIUM
     Dosage: 189 MILLIGRAM, MONTHLY
     Route: 058
     Dates: start: 2020
  3. HEMIN [Concomitant]
     Active Substance: HEMIN
     Indication: Product used for unknown indication
     Dosage: UNK
     Route: 065

REACTIONS (6)
  - Abortion spontaneous [Unknown]
  - Therapy cessation [Recovered/Resolved]
  - Nausea [Unknown]
  - Fatigue [Unknown]
  - Injection site reaction [Unknown]
  - COVID-19 [Unknown]

NARRATIVE: CASE EVENT DATE: 20200601
